FAERS Safety Report 22297223 (Version 1)
Quarter: 2023Q2

REPORT INFORMATION
  Report Type: Spontaneous
  Country: GB (occurrence: GB)
  Receive Date: 20230509
  Receipt Date: 20230509
  Transmission Date: 20230721
  Serious: Yes (Other)
  Sender: FDA-Public Use
  Company Number: GB-MHRA-MED-202304261441245520-WPLNH

PATIENT
  Age: 55 Year
  Sex: Male

DRUGS (1)
  1. PIRFENIDONE [Suspect]
     Active Substance: PIRFENIDONE
     Indication: Product used for unknown indication
     Dosage: 2403 MILLIGRAM DAILY; 267MG 3 TDS; UNIT DOSE : 801 MG
     Route: 065

REACTIONS (1)
  - Cough [Not Recovered/Not Resolved]
